FAERS Safety Report 12825337 (Version 1)
Quarter: 2016Q4

REPORT INFORMATION
  Report Type: Spontaneous
  Country: FR (occurrence: FR)
  Receive Date: 20161006
  Receipt Date: 20161006
  Transmission Date: 20170207
  Serious: Yes (Hospitalization)
  Sender: FDA-Public Use
  Company Number: FR-009507513-1610FRA000675

PATIENT
  Age: 36 Year
  Sex: Female

DRUGS (3)
  1. ORGALUTRAN [Suspect]
     Active Substance: GANIRELIX ACETATE
     Dosage: (STRENGTH 0.25 MG/ 0.5 ML)1 DF, QD
     Route: 058
     Dates: start: 2016, end: 2016
  2. GONAL-F [Suspect]
     Active Substance: FOLLITROPIN
     Dosage: (STRENGTH: 150 IU (11 MICROGRAM)
     Route: 058
     Dates: start: 201601, end: 2016
  3. OVITRELLE [Suspect]
     Active Substance: CHORIOGONADOTROPIN ALFA
     Dosage: STRENGTH 250 MICROGRAMS/0.5 ML, 1 DF IN 1 SINGLE INTAKE
     Route: 058
     Dates: start: 20160208, end: 2016

REACTIONS (2)
  - Ovarian hyperstimulation syndrome [Recovered/Resolved]
  - Ascites [Recovered/Resolved]

NARRATIVE: CASE EVENT DATE: 2016
